FAERS Safety Report 21948068 (Version 1)
Quarter: 2023Q1

REPORT INFORMATION
  Report Type: Spontaneous
  Country: CR (occurrence: CR)
  Receive Date: 20230203
  Receipt Date: 20230203
  Transmission Date: 20230417
  Serious: Yes (Other)
  Sender: FDA-Public Use
  Company Number: CR-SUN PHARMACEUTICAL INDUSTRIES LTD-2023RR-376221

PATIENT
  Age: 8 Year
  Sex: Male

DRUGS (5)
  1. GABAPENTIN [Suspect]
     Active Substance: GABAPENTIN
     Indication: Red ear syndrome
     Dosage: 300 MILLIGRAM, BID, 20 MG/KG/DAY
     Route: 065
  2. IMIPRAMINE [Suspect]
     Active Substance: IMIPRAMINE
     Indication: Red ear syndrome
     Dosage: 25 MILLIGRAM, DAILY
     Route: 065
  3. PROPRANOLOL [Suspect]
     Active Substance: PROPRANOLOL HYDROCHLORIDE
     Indication: Red ear syndrome
     Dosage: 20 MILLIGRAM, BID
     Route: 065
  4. PROPRANOLOL [Suspect]
     Active Substance: PROPRANOLOL HYDROCHLORIDE
     Dosage: 20 MILLIGRAM, TID
     Route: 065
  5. IBUPROFEN [Suspect]
     Active Substance: IBUPROFEN
     Indication: Red ear syndrome
     Route: 065

REACTIONS (6)
  - Drug ineffective [Unknown]
  - Somnolence [Unknown]
  - Disturbance in attention [Unknown]
  - Therapeutic product effect incomplete [Unknown]
  - Therapy cessation [Unknown]
  - Condition aggravated [Unknown]
